FAERS Safety Report 11916752 (Version 1)
Quarter: 2016Q1

REPORT INFORMATION
  Report Type: Report from Study
  Country: US (occurrence: US)
  Receive Date: 20160114
  Receipt Date: 20160114
  Transmission Date: 20160526
  Serious: Yes (Hospitalization)
  Sender: FDA-Public Use
  Company Number: US-JNJFOC-20160107556

PATIENT
  Age: 70 Year
  Sex: Male

DRUGS (1)
  1. IMBRUVICA [Suspect]
     Active Substance: IBRUTINIB
     Indication: NON-HODGKIN^S LYMPHOMA
     Route: 048
     Dates: start: 20151202

REACTIONS (4)
  - Pyrexia [Unknown]
  - Haemorrhagic stroke [Unknown]
  - Off label use [Unknown]
  - Paralysis [Unknown]

NARRATIVE: CASE EVENT DATE: 20151231
